FAERS Safety Report 14842003 (Version 5)
Quarter: 2019Q4

REPORT INFORMATION
  Report Type: Spontaneous
  Country: JP (occurrence: JP)
  Receive Date: 20180503
  Receipt Date: 20191114
  Transmission Date: 20200122
  Serious: Yes (Other)
  Sender: FDA-Public Use
  Company Number: JP-ACTELION-A-CH2018-171685

PATIENT
  Age: 13 Year
  Sex: Male
  Weight: 48.6 kg

DRUGS (28)
  1. UPTRAVI [Suspect]
     Active Substance: SELEXIPAG
     Dosage: 0.4 MG, BID
     Route: 048
     Dates: start: 20170302, end: 20170320
  2. UPTRAVI [Suspect]
     Active Substance: SELEXIPAG
     Dosage: 0.65 MG, BID
     Route: 048
     Dates: start: 20170524, end: 20170606
  3. WARFARIN [Concomitant]
     Active Substance: WARFARIN
  4. ADCIRCA [Concomitant]
     Active Substance: TADALAFIL
     Dosage: 40 MG, QD
  5. RENIVACE [Concomitant]
     Active Substance: ENALAPRIL
  6. ALDACTONE A [Concomitant]
     Active Substance: SPIRONOLACTONE
  7. UPTRAVI [Suspect]
     Active Substance: SELEXIPAG
     Dosage: 0.1 MG, BID
     Route: 048
     Dates: start: 20170119, end: 20170201
  8. UPTRAVI [Suspect]
     Active Substance: SELEXIPAG
     Dosage: 0.45 MG, BID
     Route: 048
     Dates: start: 20170331, end: 20170411
  9. UPTRAVI [Suspect]
     Active Substance: SELEXIPAG
     Dosage: 0.55 MG, BID
     Route: 048
     Dates: start: 20170426, end: 20170509
  10. UPTRAVI [Suspect]
     Active Substance: SELEXIPAG
     Dosage: 0.6 MG, BID
     Route: 048
     Dates: start: 20170510, end: 20170523
  11. UPTRAVI [Suspect]
     Active Substance: SELEXIPAG
     Dosage: 0.75 MG, BID
     Route: 048
     Dates: start: 20170621, end: 20170704
  12. UPTRAVI [Suspect]
     Active Substance: SELEXIPAG
     Dosage: 0.85 MG, BID
     Route: 048
     Dates: start: 20170719
  13. UPTRAVI [Suspect]
     Active Substance: SELEXIPAG
     Dosage: 0.3 MG, BID
     Route: 048
     Dates: start: 20170216, end: 20170301
  14. UPTRAVI [Suspect]
     Active Substance: SELEXIPAG
     Dosage: 0.8 MG, BID
     Route: 048
     Dates: start: 20170705, end: 20170718
  15. OPSUMIT [Suspect]
     Active Substance: MACITENTAN
     Indication: PULMONARY ARTERIAL HYPERTENSION
     Dosage: 10 MG, QD
     Route: 048
     Dates: start: 20160218
  16. ALESION [Concomitant]
     Active Substance: EPINASTINE HYDROCHLORIDE
  17. RIBALL [Concomitant]
     Active Substance: ALLOPURINOL
  18. UPTRAVI [Suspect]
     Active Substance: SELEXIPAG
     Dosage: 0.2 MG, BID
     Route: 048
     Dates: start: 20170202, end: 20170215
  19. UPTRAVI [Suspect]
     Active Substance: SELEXIPAG
     Dosage: 1.35 MG, BID
     Route: 048
  20. BERAPROST SODIUM [Concomitant]
     Active Substance: BERAPROST SODIUM
  21. FUROSEMIDE. [Concomitant]
     Active Substance: FUROSEMIDE
  22. PIMOBENDAN [Concomitant]
     Active Substance: PIMOBENDAN
  23. OXYGEN. [Concomitant]
     Active Substance: OXYGEN
  24. UPTRAVI [Suspect]
     Active Substance: SELEXIPAG
     Dosage: 0.7 MG, BID
     Route: 048
     Dates: start: 20170607, end: 20170620
  25. FEBURIC [Concomitant]
     Active Substance: FEBUXOSTAT
  26. UPTRAVI [Suspect]
     Active Substance: SELEXIPAG
     Indication: PULMONARY ARTERIAL HYPERTENSION
     Dosage: 0.5 MG, BID
     Route: 048
     Dates: start: 20170412, end: 20170425
  27. UPTRAVI [Suspect]
     Active Substance: SELEXIPAG
     Dosage: 2.5 MG, QD
     Route: 048
     Dates: start: 2018
  28. ONON [Concomitant]
     Active Substance: PRANLUKAST

REACTIONS (4)
  - Renal impairment [Unknown]
  - Blood urea increased [Not Recovered/Not Resolved]
  - Diarrhoea [Not Recovered/Not Resolved]
  - Blood creatinine increased [Not Recovered/Not Resolved]

NARRATIVE: CASE EVENT DATE: 20170419
